FAERS Safety Report 6845652-1 (Version None)
Quarter: 2010Q3

REPORT INFORMATION
  Report Type: 
  Country: None (occurrence: None)
  Receive Date: 20100715
  Receipt Date: 20071024
  Transmission Date: 20110219
  Serious: No
  Sender: FDA-Public Use
  Company Number: US-PFIZER INC-2007070404

PATIENT
  Sex: Female
  Weight: 49.1 kg

DRUGS (13)
  1. CHANTIX [Suspect]
     Indication: SMOKING CESSATION THERAPY
     Dates: start: 20070810
  2. MEGESTROL ACETATE [Concomitant]
  3. VITACAL [Concomitant]
  4. ATENOLOL [Concomitant]
  5. PROTONIX [Concomitant]
  6. FOLIC ACID [Concomitant]
  7. FOSAMAX [Concomitant]
  8. DONNATAL [Concomitant]
  9. ACETYLSALICYLIC ACID [Concomitant]
  10. ULTRAM [Concomitant]
     Indication: BACK PAIN
  11. QUININE [Concomitant]
  12. CITALOPRAM HYDROBROMIDE [Concomitant]
  13. CHOLESTYRAMINE [Concomitant]

REACTIONS (2)
  - DRUG INEFFECTIVE [None]
  - NAUSEA [None]
